FAERS Safety Report 6226939-2 (Version None)
Quarter: 2009Q2

REPORT INFORMATION
  Report Type: 
  Country: None (occurrence: None)
  Receive Date: 20090612
  Receipt Date: 20090522
  Transmission Date: 20091009
  Serious: No
  Sender: FDA-Public Use
  Company Number: US-ABBOTT-09P-163-0575718-00

PATIENT
  Sex: Male
  Weight: 63.56 kg

DRUGS (5)
  1. HUMIRA [Suspect]
     Indication: CROHN'S DISEASE
     Route: 058
     Dates: start: 20070401
  2. ULTRAM [Concomitant]
     Indication: BACK PAIN
  3. FLEXERIL [Concomitant]
     Indication: BACK DISORDER
  4. PREDNISONE [Concomitant]
     Indication: CROHN'S DISEASE
     Dosage: CAN TAKE UP TO 20MG PRN QD, AND WEAN DOWN.
  5. CITRACAL [Concomitant]
     Indication: DRUG USE FOR UNKNOWN INDICATION

REACTIONS (2)
  - DRUG DOSE OMISSION [None]
  - MUSCLE SPASMS [None]
